FAERS Safety Report 23303578 (Version 1)
Quarter: 2023Q4

REPORT INFORMATION
  Report Type: Spontaneous
  Country: US (occurrence: None)
  Receive Date: 20231215
  Receipt Date: 20231215
  Transmission Date: 20240110
  Serious: Yes (Disabling)
  Sender: FDA-Public Use
  Company Number: None

PATIENT
  Age: 69 Year
  Sex: Female
  Weight: 72 kg

DRUGS (15)
  1. LEVOFLOXACIN [Suspect]
     Active Substance: LEVOFLOXACIN
     Indication: Urinary tract infection
     Dosage: OTHER QUANTITY : 1 TABLET(S);?FREQUENCY : DAILY;?
     Route: 048
     Dates: start: 20231203, end: 20231207
  2. CELECOXIB [Concomitant]
     Active Substance: CELECOXIB
  3. LYRICA [Concomitant]
     Active Substance: PREGABALIN
  4. ZOLPIDEM [Concomitant]
     Active Substance: ZOLPIDEM TARTRATE
  5. PEPCID [Concomitant]
     Active Substance: FAMOTIDINE
  6. GLIPIZIDE [Concomitant]
     Active Substance: GLIPIZIDE
  7. OMEPRAZOLE [Concomitant]
     Active Substance: OMEPRAZOLE
  8. ATORVASTATIN [Concomitant]
     Active Substance: ATORVASTATIN
  9. LASIX [Concomitant]
     Active Substance: FUROSEMIDE
  10. VITAMIN B [Concomitant]
     Active Substance: VITAMIN B
  11. VITAMIN C [Concomitant]
     Active Substance: ASCORBIC ACID
  12. VITAMIN D NOS [Concomitant]
     Active Substance: VITAMIN D NOS
  13. MAGNESIUM [Concomitant]
     Active Substance: MAGNESIUM
  14. Apple cider vinegar gummies [Concomitant]
  15. Metamucil gummies [Concomitant]

REACTIONS (3)
  - Tendon pain [None]
  - Pain in extremity [None]
  - Gait disturbance [None]

NARRATIVE: CASE EVENT DATE: 20231208
